FAERS Safety Report 20343719 (Version 1)
Quarter: 2022Q1

REPORT INFORMATION
  Report Type: Spontaneous
  Country: US (occurrence: US)
  Receive Date: 20220118
  Receipt Date: 20220118
  Transmission Date: 20220423
  Serious: Yes (Life-Threatening, Hospitalization, Other)
  Sender: FDA-Public Use
  Company Number: US-AMGEN-USASP2022004949

PATIENT
  Age: 85 Year
  Sex: Female

DRUGS (10)
  1. PROLIA [Suspect]
     Active Substance: DENOSUMAB
     Indication: Product used for unknown indication
     Dosage: UNK
     Route: 065
  2. WARFARIN [Concomitant]
     Active Substance: WARFARIN
  3. APIXABAN [Concomitant]
     Active Substance: APIXABAN
  4. DABIGATRAN [Concomitant]
     Active Substance: DABIGATRAN
     Dosage: 75 MILLIGRAM, BID
  5. FLUTICASONE FUROATE\VILANTEROL TRIFENATATE [Concomitant]
     Active Substance: FLUTICASONE FUROATE\VILANTEROL TRIFENATATE
  6. DIGOXIN [Concomitant]
     Active Substance: DIGOXIN
  7. FUROSEMIDE [Concomitant]
     Active Substance: FUROSEMIDE
  8. POTASSIUM CHLORIDE [Concomitant]
     Active Substance: POTASSIUM CHLORIDE
  9. SPIRONOLACTONE [Concomitant]
     Active Substance: SPIRONOLACTONE
  10. TIOTROPIUM [Concomitant]
     Active Substance: TIOTROPIUM

REACTIONS (5)
  - Gastritis haemorrhagic [Recovering/Resolving]
  - Shock haemorrhagic [Unknown]
  - Acute kidney injury [Unknown]
  - Dementia [Unknown]
  - International normalised ratio increased [Unknown]
